FAERS Safety Report 5962927-9 (Version None)
Quarter: 2008Q4

REPORT INFORMATION
  Report Type: 
  Country: None (occurrence: None)
  Receive Date: 20081120
  Receipt Date: 20081113
  Transmission Date: 20090506
  Serious: Yes (Death)
  Sender: FDA-Public Use
  Company Number: 2008-0010

PATIENT
  Age: 22 Year
  Sex: Male

DRUGS (2)
  1. METHADONE HCL [Suspect]
  2. FLUOXETINE [Suspect]

REACTIONS (2)
  - DRUG SCREEN POSITIVE [None]
  - OVERDOSE [None]
